FAERS Safety Report 17835168 (Version 2)
Quarter: 2022Q2

REPORT INFORMATION
  Report Type: Report from Study
  Country: US (occurrence: US)
  Receive Date: 20200528
  Receipt Date: 20220523
  Transmission Date: 20220721
  Serious: Yes (Other)
  Sender: FDA-Public Use
  Company Number: US-NOVARTISTESTPH-NVSC2020US145865

PATIENT
  Sex: Male

DRUGS (3)
  1. AFINITOR DISPERZ [Suspect]
     Active Substance: EVEROLIMUS
     Indication: Seizure
     Dosage: 5 MG, QD
     Route: 048
     Dates: start: 20200108
  2. AFINITOR DISPERZ [Suspect]
     Active Substance: EVEROLIMUS
     Dosage: 10 MG, QD
     Route: 048
     Dates: start: 20200108
  3. MOUTH WASH [Concomitant]
     Indication: Stomatitis
     Dosage: UNK
     Route: 065

REACTIONS (3)
  - Seizure [Not Recovered/Not Resolved]
  - Stomatitis [Recovered/Resolved]
  - Paraesthesia [Not Recovered/Not Resolved]
